FAERS Safety Report 17716697 (Version 5)
Quarter: 2021Q3

REPORT INFORMATION
  Report Type: Spontaneous
  Country: US (occurrence: US)
  Receive Date: 20200428
  Receipt Date: 20210816
  Transmission Date: 20211014
  Serious: Yes (Other)
  Sender: FDA-Public Use
  Company Number: US-GILEAD-2020-0460966

PATIENT
  Age: 27 Year
  Sex: Male
  Weight: 65.76 kg

DRUGS (24)
  1. VIREAD [Suspect]
     Active Substance: TENOFOVIR DISOPROXIL FUMARATE
     Indication: HIV INFECTION
     Dosage: UNK
     Route: 048
     Dates: start: 200905, end: 201801
  2. SULFAMETHOXAZOLE;TRIMETHOPRIM [Concomitant]
     Active Substance: SULFAMETHOXAZOLE\TRIMETHOPRIM
  3. TRUVADA [Suspect]
     Active Substance: EMTRICITABINE\TENOFOVIR DISOPROXIL FUMARATE
     Indication: HIV INFECTION
     Dosage: UNK
     Route: 048
     Dates: start: 20090501, end: 20130801
  4. REYATAZ [Concomitant]
     Active Substance: ATAZANAVIR SULFATE
  5. EPZICOM [Concomitant]
     Active Substance: ABACAVIR SULFATE\LAMIVUDINE
  6. RESTORIL [Concomitant]
     Active Substance: TEMAZEPAM
  7. NICODERM CQ [Concomitant]
     Active Substance: NICOTINE
  8. LORAZEPAM. [Concomitant]
     Active Substance: LORAZEPAM
  9. BIKTARVY [Concomitant]
     Active Substance: BICTEGRAVIR SODIUM\EMTRICITABINE\TENOFOVIR ALAFENAMIDE FUMARATE
  10. GENVOYA [Concomitant]
     Active Substance: COBICISTAT\ELVITEGRAVIR\EMTRICITABINE\TENOFOVIR ALAFENAMIDE FUMARATE
  11. EDURANT [Concomitant]
     Active Substance: RILPIVIRINE HYDROCHLORIDE
  12. LORATADINE. [Concomitant]
     Active Substance: LORATADINE
  13. SERTRALINE [Concomitant]
     Active Substance: SERTRALINE HYDROCHLORIDE
  14. IBUPROFEN. [Concomitant]
     Active Substance: IBUPROFEN
  15. KETOTIFEN [Concomitant]
     Active Substance: KETOTIFEN
  16. DIPHENHYDRAMINE. [Concomitant]
     Active Substance: DIPHENHYDRAMINE
  17. TEMAZEPAM. [Concomitant]
     Active Substance: TEMAZEPAM
  18. TRUVADA [Suspect]
     Active Substance: EMTRICITABINE\TENOFOVIR DISOPROXIL FUMARATE
     Dosage: UNK
     Route: 065
     Dates: start: 20090620, end: 20130806
  19. ONDANSETRON [Concomitant]
     Active Substance: ONDANSETRON
  20. TRAMADOL. [Concomitant]
     Active Substance: TRAMADOL
  21. COMPLERA [Suspect]
     Active Substance: EMTRICITABINE\RILPIVIRINE HYDROCHLORIDE\TENOFOVIR DISOPROXIL FUMARATE
     Indication: HIV INFECTION
     Dosage: UNK
     Route: 048
     Dates: start: 20130806, end: 201801
  22. NORVIR [Concomitant]
     Active Substance: RITONAVIR
  23. ZOLPIDEM [Concomitant]
     Active Substance: ZOLPIDEM TARTRATE
  24. TRAZODONE [Concomitant]
     Active Substance: TRAZODONE HYDROCHLORIDE

REACTIONS (6)
  - Renal failure [Not Recovered/Not Resolved]
  - Fanconi syndrome acquired [Not Recovered/Not Resolved]
  - Fatigue [Unknown]
  - Exercise tolerance decreased [Unknown]
  - Chronic kidney disease [Not Recovered/Not Resolved]
  - Skeletal injury [Unknown]

NARRATIVE: CASE EVENT DATE: 20150415
